FAERS Safety Report 17499184 (Version 2)
Quarter: 2020Q1

REPORT INFORMATION
  Report Type: Spontaneous
  Country: US (occurrence: US)
  Receive Date: 20200305
  Receipt Date: 20200324
  Transmission Date: 20200409
  Serious: No
  Sender: FDA-Public Use
  Company Number: US-AMGEN-USASP2020035970

PATIENT
  Age: 70 Year
  Sex: Female
  Weight: 86.17 kg

DRUGS (6)
  1. XGEVA [Suspect]
     Active Substance: DENOSUMAB
     Indication: RESORPTION BONE INCREASED
     Dosage: UNK UNK, QMO
     Route: 065
     Dates: start: 201702
  2. GABAPENTIN. [Concomitant]
     Active Substance: GABAPENTIN
     Indication: PAIN
     Dosage: UNK
     Dates: start: 2017
  3. IBRANCE [Suspect]
     Active Substance: PALBOCICLIB
     Indication: HER-2 POSITIVE BREAST CANCER
     Dosage: 75 MILLIGRAM, QD, 3 WEEKS ON 1 WEEK OFF
     Route: 065
     Dates: start: 20170215
  4. BACLOFEN. [Concomitant]
     Active Substance: BACLOFEN
     Indication: PAIN
     Dosage: UNK
     Dates: start: 2017
  5. TRAMADOL. [Concomitant]
     Active Substance: TRAMADOL
     Dosage: UNK
     Dates: start: 2017
  6. LETROZOLE. [Suspect]
     Active Substance: LETROZOLE
     Indication: HER-2 POSITIVE BREAST CANCER
     Dosage: 25 MILLIGRAM, QD
     Route: 065
     Dates: start: 201612

REACTIONS (8)
  - Nasopharyngitis [Recovering/Resolving]
  - Alopecia [Not Recovered/Not Resolved]
  - Bladder irritation [Not Recovered/Not Resolved]
  - Urinary tract infection [Recovering/Resolving]
  - Pain [Not Recovered/Not Resolved]
  - White blood cell count abnormal [Recovering/Resolving]
  - Jaundice [Recovering/Resolving]
  - Fatigue [Recovering/Resolving]

NARRATIVE: CASE EVENT DATE: 201702
